FAERS Safety Report 8569665 (Version 6)
Quarter: 2013Q4

REPORT INFORMATION
  Report Type: Spontaneous
  Country: US (occurrence: US)
  Receive Date: 20120518
  Receipt Date: 20131107
  Transmission Date: 20140711
  Serious: Yes (Death, Hospitalization, Other)
  Sender: FDA-Public Use
  Company Number: US-ASTRAZENECA-2012SE30203

PATIENT
  Age: 76 Year
  Sex: Female
  Weight: 62.6 kg

DRUGS (19)
  1. NEXIUM [Suspect]
     Indication: GASTROOESOPHAGEAL REFLUX DISEASE
     Route: 048
     Dates: start: 20100503
  2. NEXIUM [Suspect]
     Indication: GASTROOESOPHAGEAL REFLUX DISEASE
     Route: 048
     Dates: start: 20100503
  3. NEXIUM [Suspect]
     Indication: GASTROOESOPHAGEAL REFLUX DISEASE
     Route: 048
     Dates: end: 20131029
  4. NEXIUM [Suspect]
     Indication: GASTROOESOPHAGEAL REFLUX DISEASE
     Route: 048
     Dates: end: 20131029
  5. TOPROL XL [Suspect]
     Indication: HYPERTENSION
     Route: 048
     Dates: start: 20100503
  6. TOPROL XL [Suspect]
     Indication: BLOOD PRESSURE
     Route: 048
     Dates: start: 20100503
  7. TOPROL XL [Suspect]
     Indication: HYPERTENSION
     Route: 048
     Dates: end: 20131029
  8. TOPROL XL [Suspect]
     Indication: BLOOD PRESSURE
     Route: 048
     Dates: end: 20131029
  9. ASPIRIN [Concomitant]
     Route: 048
  10. KARAFATE [Concomitant]
     Dosage: 1GM PRN
     Route: 048
  11. LEVOTHYROXINE [Concomitant]
     Indication: HYPOTHYROIDISM
     Dosage: DAILY
     Route: 048
  12. ZYTEC [Concomitant]
     Route: 048
  13. EXELON PATCH [Concomitant]
     Dosage: DAILY
     Route: 048
  14. CALTRATE [Concomitant]
     Dosage: DAILY
     Route: 048
  15. FLONASE [Concomitant]
     Dosage: DAILY
     Route: 045
  16. CYMBALTA [Concomitant]
     Dosage: DAILY
     Route: 048
  17. NORVASC [Concomitant]
     Indication: BLOOD PRESSURE
     Dosage: DAILY
     Route: 048
  18. PRAVASTATIN [Concomitant]
     Dosage: DAILY
     Route: 048
  19. LORTAB [Concomitant]
     Indication: PAIN
     Dosage: PRN
     Route: 048

REACTIONS (11)
  - Cerebrovascular accident [Fatal]
  - Aneurysm [Fatal]
  - Cerebral haemorrhage [Fatal]
  - Coronary artery occlusion [Unknown]
  - Ulcer haemorrhage [Unknown]
  - Renal failure [Unknown]
  - Brain neoplasm [Unknown]
  - Ulcer [Unknown]
  - Dyspepsia [Unknown]
  - Drug dose omission [Unknown]
  - Off label use [Unknown]
